FAERS Safety Report 13278715 (Version 1)
Quarter: 2017Q1

REPORT INFORMATION
  Report Type: Spontaneous
  Country: US (occurrence: US)
  Receive Date: 20170228
  Receipt Date: 20170228
  Transmission Date: 20170428
  Serious: Yes (Life-Threatening)
  Sender: FDA-Public Use
  Company Number: US-LUNDBECK-DKLU2026870

PATIENT
  Age: 36 Year
  Sex: Male

DRUGS (2)
  1. ONFI [Suspect]
     Active Substance: CLOBAZAM
     Indication: COMPLEX PARTIAL SEIZURES
     Route: 048
     Dates: start: 201701
  2. ONFI [Suspect]
     Active Substance: CLOBAZAM
     Dosage: OVERDOSE: UNKNOWN DOSE
     Route: 048
     Dates: end: 20170216

REACTIONS (3)
  - Overdose [Unknown]
  - Drug intolerance [Unknown]
  - Suicidal ideation [Unknown]

NARRATIVE: CASE EVENT DATE: 201702
